FAERS Safety Report 9206660 (Version 1)
Quarter: 2013Q1

REPORT INFORMATION
  Report Type: Spontaneous
  Country: US (occurrence: None)
  Receive Date: 20120709
  Receipt Date: 20120709
  Transmission Date: 20140127
  Serious: Yes (Other)
  Sender: FDA-Public Use
  Company Number: PHHY2011US46219

PATIENT
  Age: 82 Year
  Sex: Male

DRUGS (2)
  1. GLEEVEC (IMATINIB) [Suspect]
  2. INTERFERON [Suspect]

REACTIONS (3)
  - Pancytopenia [None]
  - White blood cell count decreased [None]
  - Platelet count decreased [None]
